FAERS Safety Report 7682404-7 (Version None)
Quarter: 2011Q3

REPORT INFORMATION
  Report Type: 
  Country: None (occurrence: None)
  Receive Date: 20110815
  Receipt Date: 20110808
  Transmission Date: 20111222
  Serious: Yes (Death)
  Sender: FDA-Public Use
  Company Number: US-CELGENEUS-163-21880-11050457

PATIENT
  Sex: Male

DRUGS (4)
  1. MORPHINE SULFATE [Concomitant]
     Indication: PAIN
     Dosage: 30 MILLIGRAM
     Route: 065
     Dates: start: 20101130, end: 20110330
  2. LYRICA [Concomitant]
     Dosage: 150 MILLIGRAM
     Route: 065
     Dates: start: 20101115, end: 20110330
  3. REVLIMID [Suspect]
     Dosage: 10 MILLIGRAM
     Route: 048
     Dates: end: 20110301
  4. REVLIMID [Suspect]
     Indication: MULTIPLE MYELOMA
     Dosage: 25 MILLIGRAM
     Route: 048
     Dates: start: 20100801

REACTIONS (6)
  - DISEASE PROGRESSION [None]
  - ASTHENIA [None]
  - HYPOPHAGIA [None]
  - CONFUSIONAL STATE [None]
  - BACK PAIN [None]
  - DYSPNOEA [None]
